FAERS Safety Report 10371155 (Version 1)
Quarter: 2014Q3

REPORT INFORMATION
  Report Type: Spontaneous
  Country: US (occurrence: None)
  Receive Date: 20140807
  Receipt Date: 20140807
  Transmission Date: 20150326
  Serious: Yes (Other)
  Sender: FDA-Public Use
  Company Number: None

PATIENT
  Age: 56 Year
  Sex: Female
  Weight: 70.76 kg

DRUGS (1)
  1. METFORMIN HCL [Suspect]
     Active Substance: METFORMIN HYDROCHLORIDE
     Indication: TYPE 2 DIABETES MELLITUS
     Route: 048
     Dates: start: 20140401, end: 20140602

REACTIONS (7)
  - Joint stiffness [None]
  - Blood glucose increased [None]
  - Nerve injury [None]
  - Joint swelling [None]
  - Peripheral swelling [None]
  - Gait disturbance [None]
  - Arthritis [None]

NARRATIVE: CASE EVENT DATE: 20140602
